FAERS Safety Report 23217951 (Version 2)
Quarter: 2024Q2

REPORT INFORMATION
  Report Type: Spontaneous
  Country: US (occurrence: US)
  Receive Date: 20231122
  Receipt Date: 20240509
  Transmission Date: 20240715
  Serious: No
  Sender: FDA-Public Use
  Company Number: US-SA-SAC20231115001472

PATIENT
  Age: 78 Year
  Sex: Male
  Weight: 131.54 kg

DRUGS (14)
  1. DUPIXENT [Suspect]
     Active Substance: DUPILUMAB
     Indication: Dermatitis atopic
     Dosage: 300 MG, QOW
     Route: 058
  2. FLONASE ALLERGY RELIEF [Concomitant]
     Active Substance: FLUTICASONE PROPIONATE
  3. ALBUTEROL SULFATE [Concomitant]
     Active Substance: ALBUTEROL SULFATE
  4. HYDROMORPHONE [Concomitant]
     Active Substance: HYDROMORPHONE
  5. PIMECROLIMUS [Concomitant]
     Active Substance: PIMECROLIMUS
  6. FAMOTIDINE [Concomitant]
     Active Substance: FAMOTIDINE
  7. ELIQUIS [Concomitant]
     Active Substance: APIXABAN
  8. LEVETIRACETAM [Concomitant]
     Active Substance: LEVETIRACETAM
  9. GEMTESA [Concomitant]
     Active Substance: VIBEGRON
  10. ALFUZOSIN HYDROCHLORIDE [Concomitant]
     Active Substance: ALFUZOSIN HYDROCHLORIDE
  11. CRESTOR [Concomitant]
     Active Substance: ROSUVASTATIN CALCIUM
  12. CARVEDILOL [Concomitant]
     Active Substance: CARVEDILOL
  13. RAMIPRIL [Concomitant]
     Active Substance: RAMIPRIL
  14. ADBRY [Concomitant]
     Active Substance: TRALOKINUMAB-LDRM
     Dosage: 10MG

REACTIONS (5)
  - Lacrimation increased [Unknown]
  - Insomnia [Unknown]
  - Erythema [Unknown]
  - Arthralgia [Unknown]
  - Eye pruritus [Unknown]
